FAERS Safety Report 25440450 (Version 1)
Quarter: 2025Q2

REPORT INFORMATION
  Report Type: Spontaneous
  Country: US (occurrence: None)
  Receive Date: 20250616
  Receipt Date: 20250616
  Transmission Date: 20250716
  Serious: Yes (Life-Threatening)
  Sender: FDA-CTU
  Company Number: None

PATIENT
  Sex: Female

DRUGS (1)
  1. DUPIXENT [Suspect]
     Active Substance: DUPILUMAB
     Indication: Chronic obstructive pulmonary disease
     Route: 058
     Dates: start: 20250613, end: 20250613

REACTIONS (6)
  - Hypoaesthesia oral [None]
  - Hypoaesthesia oral [None]
  - Influenza like illness [None]
  - Pain [None]
  - Fatigue [None]
  - Anaphylactoid reaction [None]

NARRATIVE: CASE EVENT DATE: 20250613
